FAERS Safety Report 18856647 (Version 1)
Quarter: 2021Q1

REPORT INFORMATION
  Report Type: Spontaneous
  Country: GB (occurrence: GB)
  Receive Date: 20210207
  Receipt Date: 20210207
  Transmission Date: 20210420
  Serious: Yes (Hospitalization, Other)
  Sender: FDA-Public Use
  Company Number: GB-TAKEDA-2019TUS027027

PATIENT
  Sex: Female

DRUGS (1)
  1. ENTYVIO [Suspect]
     Active Substance: VEDOLIZUMAB
     Indication: COLITIS ULCERATIVE
     Dosage: 300 MILLIGRAM
     Route: 042
     Dates: start: 201809

REACTIONS (4)
  - Colitis ulcerative [Not Recovered/Not Resolved]
  - Nasal mucosal blistering [Not Recovered/Not Resolved]
  - Therapeutic reaction time decreased [Unknown]
  - Furuncle [Not Recovered/Not Resolved]
